FAERS Safety Report 20385619 (Version 1)
Quarter: 2022Q1

REPORT INFORMATION
  Report Type: Spontaneous
  Country: DE (occurrence: DE)
  Receive Date: 20220127
  Receipt Date: 20220127
  Transmission Date: 20220424
  Serious: Yes (Death)
  Sender: FDA-Public Use
  Company Number: DE-CELGENE-DEU-20220106912

PATIENT
  Sex: Male
  Weight: 73 kg

DRUGS (4)
  1. PACLITAXEL [Suspect]
     Active Substance: PACLITAXEL
     Indication: Non-small cell lung cancer
     Route: 065
     Dates: start: 20211129, end: 20211129
  2. NIVOLUMAB [Suspect]
     Active Substance: NIVOLUMAB
     Indication: Non-small cell lung cancer
     Route: 065
     Dates: start: 20211129, end: 20211129
  3. IPILIMUMAB [Suspect]
     Active Substance: IPILIMUMAB
     Indication: Non-small cell lung cancer
     Route: 065
     Dates: start: 20211129, end: 20211129
  4. CARBOPLATIN [Suspect]
     Active Substance: CARBOPLATIN
     Indication: Non-small cell lung cancer
     Route: 065
     Dates: start: 20211129, end: 20211129

REACTIONS (2)
  - Non-small cell lung cancer [Fatal]
  - Cachexia [Fatal]
